FAERS Safety Report 4824599-6 (Version None)
Quarter: 2005Q4

REPORT INFORMATION
  Report Type: 
  Country: None (occurrence: None)
  Receive Date: 20051108
  Receipt Date: 20051025
  Transmission Date: 20060501
  Serious: Yes (Death)
  Sender: FDA-Public Use
  Company Number: JP_050907500

PATIENT
  Age: 84 Year
  Sex: Male
  Weight: 47 kg

DRUGS (1)
  1. GEMZAR [Suspect]
     Indication: PANCREATIC CARCINOMA
     Dosage: 1000 MG OTHER
     Route: 050
     Dates: start: 20050805, end: 20050918

REACTIONS (8)
  - ASCITES [None]
  - GASTROINTESTINAL DISORDER [None]
  - PANCREATIC DISORDER [None]
  - PANCREATIC ENLARGEMENT [None]
  - PANCREATITIS ACUTE [None]
  - PSEUDOCYST [None]
  - RENAL DISORDER [None]
  - WHITE BLOOD CELL COUNT INCREASED [None]
